FAERS Safety Report 5330635-3 (Version None)
Quarter: 2007Q2

REPORT INFORMATION
  Report Type: 
  Country: None (occurrence: None)
  Receive Date: 20070517
  Receipt Date: 20070501
  Transmission Date: 20071010
  Serious: Yes (Hospitalization)
  Sender: FDA-Public Use
  Company Number: DSA_29792_2007

PATIENT
  Sex: Female

DRUGS (4)
  1. ATIVAN [Suspect]
     Dosage: 1 MG QD TRANSPLACENTAL
     Route: 064
     Dates: start: 20060927, end: 20061106
  2. ATIVAN [Suspect]
     Dosage: TRANSMAMMARY
     Route: 063
     Dates: end: 20070228
  3. ZYPREXA [Suspect]
     Dosage: TRANSPLACENTAL
     Route: 064
     Dates: start: 20061202, end: 20070110
  4. CELEXA [Suspect]
     Dosage: TRANSMAMMARY
     Route: 063
     Dates: end: 20070228

REACTIONS (6)
  - APGAR SCORE LOW [None]
  - BROW PRESENTATION [None]
  - DRUG EXPOSURE DURING PREGNANCY [None]
  - DRUG EXPOSURE VIA BREAST MILK [None]
  - MECONIUM IN AMNIOTIC FLUID [None]
  - SOMNOLENCE NEONATAL [None]
